FAERS Safety Report 24639575 (Version 2)
Quarter: 2025Q1

REPORT INFORMATION
  Report Type: Report from Study
  Country: US (occurrence: US)
  Receive Date: 20241119
  Receipt Date: 20250131
  Transmission Date: 20250408
  Serious: Yes (Other)
  Sender: ABBVIE
  Company Number: US-ABBVIE-6006276

PATIENT
  Age: 16 Year
  Sex: Female

DRUGS (2)
  1. HUMIRA [Suspect]
     Active Substance: ADALIMUMAB
     Indication: Hidradenitis
     Route: 058
     Dates: start: 20241113
  2. HUMIRA [Suspect]
     Active Substance: ADALIMUMAB
     Route: 058
     Dates: start: 20240924

REACTIONS (5)
  - Abscess rupture [Unknown]
  - Bloody discharge [Unknown]
  - Purulent discharge [Unknown]
  - Pain [Unknown]
  - Abscess [Unknown]

NARRATIVE: CASE EVENT DATE: 20241113
